FAERS Safety Report 17524669 (Version 1)
Quarter: 2020Q1

REPORT INFORMATION
  Report Type: Spontaneous
  Country: GB (occurrence: GB)
  Receive Date: 20200310
  Receipt Date: 20200310
  Transmission Date: 20200409
  Serious: Yes (Hospitalization)
  Sender: FDA-Public Use
  Company Number: GB-MYLANLABS-2020M1025353

PATIENT
  Age: 49 Year
  Sex: Male

DRUGS (6)
  1. TERBINAFINE. [Suspect]
     Active Substance: TERBINAFINE
     Indication: RASH
     Dosage: IN MORNING
     Route: 048
     Dates: start: 20200102
  2. HYDROCORTISONE. [Concomitant]
     Active Substance: HYDROCORTISONE
     Dosage: APPLY BD OR 2 WEEKS
     Route: 061
     Dates: start: 20200102
  3. WHITE SOFT PARAFFIN [Concomitant]
     Active Substance: PARAFFIN
     Dosage: UNK UNK, PRN APPLY
     Route: 061
     Dates: start: 20200102
  4. LIGHT LIQUID PARAFFIN [Concomitant]
     Dosage: UNK UNK,  APPLY   PRN
     Route: 061
     Dates: start: 20200102
  5. KETOCONAZOLE. [Concomitant]
     Active Substance: KETOCONAZOLE
     Dosage: 3 DOSAGE FORM, QW
     Route: 061
     Dates: start: 20191217
  6. MICONAZOLE. [Concomitant]
     Active Substance: MICONAZOLE
     Dosage: APPLY BD OR 2 WEEKS
     Route: 061
     Dates: start: 20200102

REACTIONS (3)
  - Rash [Recovering/Resolving]
  - Erythema [Recovering/Resolving]
  - Pruritus [Recovering/Resolving]

NARRATIVE: CASE EVENT DATE: 20200103
